FAERS Safety Report 9056599 (Version 1)
Quarter: 2013Q1

REPORT INFORMATION
  Report Type: Spontaneous
  Country: US (occurrence: US)
  Receive Date: 20130204
  Receipt Date: 20130204
  Transmission Date: 20140127
  Serious: Yes (Other)
  Sender: FDA-Public Use
  Company Number: CHPA2013US001800

PATIENT
  Age: 72 Year
  Sex: Female

DRUGS (11)
  1. SLOW FE BROWN [Suspect]
     Indication: BLOOD IRON DECREASED
     Dosage: 2 TO 3 TABLETS DAILY
     Route: 048
     Dates: start: 1993
  2. VITAMIN B12 [Concomitant]
     Dosage: UNK
     Dates: start: 1988
  3. MYFORTIC [Concomitant]
     Dosage: UNK
     Dates: start: 1988
  4. PREDNISONE [Concomitant]
  5. CALAN [Concomitant]
     Indication: HYPERTENSION
  6. EPOGEN [Concomitant]
     Indication: BLOOD COUNT ABNORMAL
     Dosage: UNK
     Dates: start: 1988
  7. LABETALOL [Concomitant]
     Indication: HYPERTENSION
  8. PROGRA//PAROXETINE HYDROCHLORIDE [Concomitant]
     Indication: RENAL TRANSPLANT
     Dosage: UNK, UNK
     Dates: start: 1988
  9. BACTRIM [Concomitant]
  10. ZOCOR [Concomitant]
     Dosage: UNK
     Dates: start: 1988
  11. MAGNESIUM [Concomitant]
     Dosage: UNK
     Dates: start: 1988

REACTIONS (5)
  - Fall [Recovered/Resolved]
  - Joint injury [Recovered/Resolved]
  - Renal failure [Recovered/Resolved]
  - Lower limb fracture [Recovered/Resolved]
  - Incorrect dose administered [Unknown]
